FAERS Safety Report 9073887 (Version 1)
Quarter: 2013Q1

REPORT INFORMATION
  Report Type: Report from Study
  Country: US (occurrence: US)
  Receive Date: 20130129
  Receipt Date: 20130129
  Transmission Date: 20140127
  Serious: No
  Sender: FDA-Public Use
  Company Number: US-ABBOTT-12P-163-0927657-00

PATIENT
  Age: 34 Year
  Sex: Female

DRUGS (9)
  1. HUMIRA 40 MG/0.8 ML PEN [Suspect]
     Indication: CROHN^S DISEASE
     Dates: start: 20120319, end: 20120319
  2. HUMIRA 40 MG/0.8 ML PEN [Suspect]
     Dates: start: 20120402, end: 20120402
  3. HUMIRA 40 MG/0.8 ML PEN [Suspect]
     Dates: start: 20120416
  4. METHADONE [Concomitant]
     Indication: PAIN
  5. OXYCODONE [Concomitant]
     Indication: HEADACHE
  6. ZANTAC [Concomitant]
     Indication: CROHN^S DISEASE
  7. VITAMIN D [Concomitant]
     Indication: VITAMIN SUPPLEMENTATION
  8. MAXALT [Concomitant]
     Indication: MIGRAINE
  9. B12 [Concomitant]
     Indication: PRODUCT USED FOR UNKNOWN INDICATION
     Dosage: MONTHLY

REACTIONS (3)
  - Migraine [Unknown]
  - Drug ineffective [Not Recovered/Not Resolved]
  - Crohn^s disease [Unknown]
